FAERS Safety Report 5951459-X (Version None)
Quarter: 2008Q4

REPORT INFORMATION
  Report Type: 
  Country: None (occurrence: None)
  Receive Date: 20081113
  Receipt Date: 20081103
  Transmission Date: 20090506
  Serious: Yes (Other)
  Sender: FDA-Public Use
  Company Number: IT-JNJFOC-20081007022

PATIENT
  Age: 34 Year
  Sex: Male
  Weight: 65 kg

DRUGS (5)
  1. REMICADE [Suspect]
     Route: 042
  2. REMICADE [Suspect]
     Indication: CROHN'S DISEASE
     Route: 042
  3. MESALAMINE [Concomitant]
  4. FLAGYL [Concomitant]
  5. LANSOPRAZOLE [Concomitant]

REACTIONS (1)
  - TUBERCULOSIS [None]
